FAERS Safety Report 13895923 (Version 1)
Quarter: 2017Q3

REPORT INFORMATION
  Report Type: Spontaneous
  Country: US (occurrence: None)
  Receive Date: 20170816
  Receipt Date: 20170816
  Transmission Date: 20171127
  Serious: No
  Sender: FDA-Public Use
  Company Number: None

PATIENT
  Age: 38 Year
  Sex: Male
  Weight: 85.73 kg

DRUGS (2)
  1. PROAIR HFA [Suspect]
     Active Substance: ALBUTEROL SULFATE
     Indication: WHEEZING
     Dosage: 90 MCG PER ACTIVATION, 2 PUFFS EVERY 4-6 HOURS, FOR WHEEZING, MOUTH
     Route: 048
  2. PROAIR HFA [Suspect]
     Active Substance: ALBUTEROL SULFATE
     Indication: DYSPNOEA
     Dosage: 90 MCG PER ACTIVATION, 2 PUFFS EVERY 4-6 HOURS, FOR WHEEZING, MOUTH
     Route: 048

REACTIONS (3)
  - Dizziness [None]
  - Chest pain [None]
  - Nocturnal dyspnoea [None]

NARRATIVE: CASE EVENT DATE: 20170728
